FAERS Safety Report 9319590 (Version 6)
Quarter: 2015Q1

REPORT INFORMATION
  Report Type: Spontaneous
  Country: US (occurrence: US)
  Receive Date: 20130530
  Receipt Date: 20150130
  Transmission Date: 20150721
  Serious: Yes (Hospitalization, Other)
  Sender: FDA-Public Use
  Company Number: US-GLAXOSMITHKLINE-A1010138A

PATIENT
  Sex: Female

DRUGS (10)
  1. FLOLAN [Suspect]
     Active Substance: EPOPROSTENOL SODIUM
     Dosage: UNK
     Dates: start: 20020305, end: 20140828
  2. FLOLAN [Suspect]
     Active Substance: EPOPROSTENOL SODIUM
     Dosage: UNK
     Dates: start: 20020305, end: 20140828
  3. FLOLAN [Suspect]
     Active Substance: EPOPROSTENOL SODIUM
     Indication: PULMONARY ARTERIAL HYPERTENSION
     Dosage: 37 NG/KG/MIN CONTINUOUSLY, CONCENTRATION 45,000 NG/ML, VIAL STRENGTH 1.5 MG, 83 ML/DAY
     Route: 042
     Dates: start: 20020305, end: 20140828
  4. FLOLAN [Suspect]
     Active Substance: EPOPROSTENOL SODIUM
     Dosage: UNK
     Dates: start: 20020305, end: 20140828
  5. FLOLAN [Suspect]
     Active Substance: EPOPROSTENOL SODIUM
     Dosage: 18 NG/KG/MIN CO
     Dates: start: 201410
  6. FLOLAN [Suspect]
     Active Substance: EPOPROSTENOL SODIUM
     Dosage: UNK
     Dates: start: 20020305, end: 20140828
  7. FLOLAN [Suspect]
     Active Substance: EPOPROSTENOL SODIUM
     Dosage: UNK
     Dates: start: 20020305, end: 20140828
  8. FLOLAN [Suspect]
     Active Substance: EPOPROSTENOL SODIUM
     Dosage: 17 NG/KG/MIN, CO
  9. FLOLAN [Suspect]
     Active Substance: EPOPROSTENOL SODIUM
     Dosage: UNK
     Dates: start: 20020305, end: 20140828
  10. REVATIO [Concomitant]
     Active Substance: SILDENAFIL CITRATE

REACTIONS (18)
  - Hospitalisation [Unknown]
  - Infusion site pain [Unknown]
  - Application site erythema [Unknown]
  - Pulmonary hypertension [Unknown]
  - Device related infection [Unknown]
  - Infusion site erythema [Unknown]
  - Central venous catheterisation [Unknown]
  - Application site odour [Not Recovered/Not Resolved]
  - Medical device complication [Not Recovered/Not Resolved]
  - Catheter site pain [Unknown]
  - Infusion site pruritus [Unknown]
  - Drug dose omission [Unknown]
  - Device infusion issue [Unknown]
  - Application site pruritus [Unknown]
  - Catheter site erythema [Unknown]
  - Application site irritation [Unknown]
  - Hot flush [Unknown]
  - Anxiety [Unknown]

NARRATIVE: CASE EVENT DATE: 2013
